FAERS Safety Report 16836297 (Version 2)
Quarter: 2019Q4

REPORT INFORMATION
  Report Type: Spontaneous
  Country: US (occurrence: US)
  Receive Date: 20190921
  Receipt Date: 20191023
  Transmission Date: 20200122
  Serious: Yes (Death)
  Sender: FDA-Public Use
  Company Number: US-009507513-1909USA007814

PATIENT
  Age: 86 Year
  Sex: Male

DRUGS (2)
  1. AXITINIB [Suspect]
     Active Substance: AXITINIB
     Indication: RENAL CANCER
     Dosage: UNK
  2. KEYTRUDA [Suspect]
     Active Substance: PEMBROLIZUMAB
     Indication: RENAL CANCER
     Dosage: UNK

REACTIONS (6)
  - Fatigue [Fatal]
  - Constipation [Fatal]
  - Decreased appetite [Fatal]
  - Laboratory test abnormal [Fatal]
  - Hyperhidrosis [Fatal]
  - Asthenia [Fatal]
